FAERS Safety Report 23726741 (Version 3)
Quarter: 2024Q2

REPORT INFORMATION
  Report Type: Spontaneous
  Country: CN (occurrence: CN)
  Receive Date: 20240410
  Receipt Date: 20240611
  Transmission Date: 20240716
  Serious: Yes (Hospitalization, Other)
  Sender: FDA-Public Use
  Company Number: CN-SUN PHARMACEUTICAL INDUSTRIES LTD-2024R1-440563

PATIENT
  Age: 52 Year
  Sex: Female

DRUGS (1)
  1. AMLODIPINE [Suspect]
     Active Substance: AMLODIPINE BESYLATE
     Indication: Product used for unknown indication
     Dosage: 450 MILLIGRAM
     Route: 048

REACTIONS (5)
  - Cardiac failure [Recovered/Resolved]
  - Liver injury [Recovered/Resolved]
  - Overdose [Unknown]
  - Pulmonary hypertension [Recovered/Resolved]
  - Shock [Recovered/Resolved]
